FAERS Safety Report 7913651-4 (Version None)
Quarter: 2011Q4

REPORT INFORMATION
  Report Type: 
  Country: None (occurrence: None)
  Receive Date: 20111110
  Receipt Date: 20111031
  Transmission Date: 20120403
  Serious: Yes (Congenital Anomaly)
  Sender: FDA-Public Use
  Company Number: 1000025151

PATIENT
  Sex: Male

DRUGS (1)
  1. CELEXA [Suspect]
     Indication: DEPRESSION
     Dosage: 60 MG (20 MG,3 IN 1  D), TRANSPLACENTAL
     Route: 064
     Dates: end: 20010920

REACTIONS (3)
  - DEVELOPMENTAL DELAY [None]
  - MATERNAL DRUGS AFFECTING FOETUS [None]
  - MENTAL RETARDATION [None]
